FAERS Safety Report 6608924-1 (Version None)
Quarter: 2010Q1

REPORT INFORMATION
  Report Type: 
  Country: None (occurrence: None)
  Receive Date: 20100301
  Receipt Date: 20100219
  Transmission Date: 20100710
  Serious: No
  Sender: FDA-Public Use
  Company Number: US-B.I. PHARMACEUTICALS,INC./RIDGEFIELD-2010-BP-02014BP

PATIENT
  Age: 91 Year
  Sex: Male

DRUGS (1)
  1. AGGRENOX [Suspect]
     Dates: start: 20100101

REACTIONS (1)
  - HEADACHE [None]
